FAERS Safety Report 8600914-2 (Version None)
Quarter: 2012Q3

REPORT INFORMATION
  Report Type: 
  Country: None (occurrence: None)
  Receive Date: 20120803
  Receipt Date: 20120725
  Transmission Date: 20120928
  Serious: Yes (Other)
  Sender: FDA-Public Use
  Company Number: AUR-APL-2012-03243

PATIENT
  Age: 65 Year
  Sex: Male

DRUGS (9)
  1. ISOSORBIDE MONONITRATE [Concomitant]
  2. CLOPIDOGREL [Concomitant]
  3. LEVEMIR [Concomitant]
  4. PRILOSEC [Concomitant]
  5. NOVOLOG [Concomitant]
  6. DILTIAZEM HYDROCHLORIDE [Concomitant]
  7. NICORANDIL (NICORANDIL) [Concomitant]
  8. SIMVASTATIN [Suspect]
     Indication: BLOOD CHOLESTEROL INCREASED
     Dosage: 1 DOSAGE FORMS (1 DOSAGE FORMS, 1 IN 1 D), ORAL
     Route: 048
     Dates: start: 20111212, end: 20120203
  9. LEVOTHYROXINE SODIUM [Concomitant]

REACTIONS (2)
  - PAIN IN EXTREMITY [None]
  - MYALGIA [None]
